FAERS Safety Report 7900761-0 (Version None)
Quarter: 2011Q4

REPORT INFORMATION
  Report Type: 
  Country: None (occurrence: None)
  Receive Date: 20111108
  Receipt Date: 20111102
  Transmission Date: 20120403
  Serious: Yes (Life-Threatening, Hospitalization)
  Sender: FDA-Public Use
  Company Number: CZ-PFIZER INC-2011262236

PATIENT
  Age: 70 Year
  Sex: Female

DRUGS (18)
  1. CITALOPRAM [Suspect]
  2. CITALOPRAM HYDROBROMIDE [Suspect]
  3. CALCIUM CARBONATE/COLECALCIFEROL/MINERALS NOS [Concomitant]
  4. SERTRALINE HYDROCHLORIDE [Suspect]
  5. THEOPHYLLINE [Concomitant]
  6. DHC [Suspect]
  7. TRIBENOSIDE [Concomitant]
  8. BUDESONIDE/FORMOTEROL FUMARATE [Concomitant]
     Route: 055
  9. TRAMADOL HCL [Suspect]
  10. CETIRIZINE [Concomitant]
  11. MORPHINE SULFATE [Suspect]
  12. CODEINE [Suspect]
  13. ATORVASTATIN [Concomitant]
  14. ZOLOFT [Suspect]
  15. TELMISARTAN [Concomitant]
  16. NITRENDIPINE [Concomitant]
  17. RILMENIDINE [Concomitant]
  18. METOPROLOL [Concomitant]

REACTIONS (2)
  - SEROTONIN SYNDROME [None]
  - EXPIRED DRUG ADMINISTERED [None]
